FAERS Safety Report 9911659 (Version 2)
Quarter: 2014Q2

REPORT INFORMATION
  Report Type: Report from Study
  Country: FR (occurrence: FR)
  Receive Date: 20140219
  Receipt Date: 20140627
  Transmission Date: 20141212
  Serious: Yes (Hospitalization)
  Sender: FDA-Public Use
  Company Number: PHHY2014FR019886

PATIENT
  Sex: Female

DRUGS (7)
  1. CERTICAN [Suspect]
     Indication: IMMUNOSUPPRESSION
     Dosage: 2 MG, QD
     Route: 048
     Dates: start: 20110127, end: 20120502
  2. CERTICAN [Suspect]
     Dosage: 3.25 MG, QD
     Route: 048
     Dates: start: 20120502, end: 20120810
  3. CERTICAN [Suspect]
     Dosage: 3.75 MG, DAILY
     Dates: start: 20120810, end: 20140122
  4. CELLCEPT [Suspect]
     Dates: start: 20100402
  5. SOLUPRED [Suspect]
     Dates: start: 20101004, end: 20110308
  6. ADVAGRAF [Suspect]
     Dosage: UNK
     Dates: end: 20120502
  7. NEORAL [Concomitant]
     Dosage: UNK

REACTIONS (3)
  - Vesicoureteric reflux [Recovered/Resolved]
  - Renal failure acute [Recovered/Resolved]
  - Pyelonephritis [Recovered/Resolved]
